FAERS Safety Report 8872028 (Version 1)
Quarter: 2012Q4

REPORT INFORMATION
  Report Type: 
  Country: US (occurrence: US)
  Receive Date: 20121023
  Receipt Date: 20121023
  Transmission Date: 20130627
  Serious: No
  Sender: FDA-Public Use
  Company Number: US-ASTELLAS-2012US004652

PATIENT
  Sex: Female

DRUGS (5)
  1. PROGRAF [Suspect]
     Indication: RENAL TRANSPLANT
     Dosage: 1.0 mg, UID/QD
     Route: 065
     Dates: start: 2001
  2. PROGRAF [Suspect]
     Dosage: 0.5 mg, UID/QD
     Route: 065
  3. PREDNISONE [Suspect]
     Indication: PRODUCT USED FOR UNKNOWN INDICATION
     Dosage: 1.5 mg, Unknown/D
     Route: 065
     Dates: start: 2003
  4. CELLCEPT [Suspect]
     Indication: PRODUCT USED FOR UNKNOWN INDICATION
     Dosage: UNK
     Route: 065
  5. AMOXICILLIN [Suspect]
     Indication: ANTIBIOTIC PROPHYLAXIS
     Dosage: UNK
     Route: 065
     Dates: start: 2002

REACTIONS (11)
  - Parathyroidectomy [Unknown]
  - Osteopenia [Unknown]
  - Artificial crown procedure [Unknown]
  - Endodontic procedure [Unknown]
  - Tooth extraction [Recovered/Resolved]
  - Endodontic procedure [Recovered/Resolved]
  - Dental prosthesis placement [Recovered/Resolved]
  - Artificial crown procedure [Recovered/Resolved]
  - Tooth disorder [Unknown]
  - Adverse drug reaction [Unknown]
  - Immunosuppressant drug level increased [Unknown]
